FAERS Safety Report 4681773-X (Version None)
Quarter: 2005Q2

REPORT INFORMATION
  Report Type: 
  Country: None (occurrence: None)
  Receive Date: 20050602
  Receipt Date: 20050520
  Transmission Date: 20051028
  Serious: Yes (Disabling)
  Sender: FDA-Public Use
  Company Number: 2005080856

PATIENT
  Age: 45 Year
  Sex: Male

DRUGS (2)
  1. SERTRALINE HCL [Suspect]
     Indication: ILL-DEFINED DISORDER
  2. LITHIUM CARBONATE [Suspect]
     Indication: ILL-DEFINED DISORDER

REACTIONS (7)
  - DYSPHORIA [None]
  - HYPOMANIA [None]
  - INITIAL INSOMNIA [None]
  - IRRITABILITY [None]
  - MIDDLE INSOMNIA [None]
  - MOOD SWINGS [None]
  - SLEEP DISORDER [None]
